FAERS Safety Report 6444648-1 (Version None)
Quarter: 2009Q4

REPORT INFORMATION
  Report Type: 
  Country: None (occurrence: None)
  Receive Date: 20091116
  Receipt Date: 20091116
  Transmission Date: 20100525
  Serious: Yes (Other)
  Sender: FDA-Public Use
  Company Number: None

PATIENT
  Sex: Female
  Weight: 11.4306 kg

DRUGS (1)
  1. TAMIFLU [Suspect]
     Indication: INFLUENZA
     Dosage: 30MG BID PO
     Route: 048
     Dates: start: 20091102, end: 20091105

REACTIONS (2)
  - ENTEROCOLITIS HAEMORRHAGIC [None]
  - VOMITING [None]
